FAERS Safety Report 4362267-8 (Version None)
Quarter: 2004Q2

REPORT INFORMATION
  Report Type: 
  Country: None (occurrence: None)
  Receive Date: 20040517
  Receipt Date: 20040429
  Transmission Date: 20050107
  Serious: Yes (Hospitalization)
  Sender: FDA-Public Use
  Company Number: 178927

PATIENT
  Sex: Male

DRUGS (1)
  1. AVONEX ^BIOGEN^ [Suspect]
     Indication: MULTIPLE SCLEROSIS

REACTIONS (4)
  - BLOOD POTASSIUM DECREASED [None]
  - FALL [None]
  - INJECTION SITE INFECTION [None]
  - MULTIPLE SCLEROSIS [None]
